FAERS Safety Report 9499955 (Version 1)
Quarter: 2013Q3

REPORT INFORMATION
  Report Type: Spontaneous
  Country: US (occurrence: None)
  Receive Date: 20130904
  Receipt Date: 20130904
  Transmission Date: 20140515
  Serious: Yes (Hospitalization)
  Sender: FDA-Public Use
  Company Number: None

PATIENT
  Age: 77 Year
  Sex: Female
  Weight: 59.88 kg

DRUGS (14)
  1. PRADAXA [Suspect]
     Indication: ATRIAL FIBRILLATION
     Route: 048
  2. SPIRIVA [Concomitant]
  3. FLOVENT [Concomitant]
  4. GLANTAMINE [Concomitant]
  5. MULTAQ [Concomitant]
  6. LISINOPRIL [Concomitant]
  7. METOPROLOL [Concomitant]
  8. SIMVASTATIN [Concomitant]
  9. FOSAMAX [Concomitant]
  10. AMITIZA [Concomitant]
  11. ASA [Concomitant]
  12. CALCIUM [Concomitant]
  13. GLUCOSAMINE [Concomitant]
  14. PRILOSEC [Concomitant]

REACTIONS (2)
  - Gastrointestinal haemorrhage [None]
  - Haematochezia [None]
